FAERS Safety Report 13152535 (Version 1)
Quarter: 2017Q1

REPORT INFORMATION
  Report Type: Spontaneous
  Country: CA (occurrence: CA)
  Receive Date: 20170125
  Receipt Date: 20170125
  Transmission Date: 20170428
  Serious: Yes (Hospitalization)
  Sender: FDA-Public Use
  Company Number: CA-CELGENEUS-CAN-2017013486

PATIENT
  Age: 77 Year
  Sex: Female
  Weight: 68.7 kg

DRUGS (30)
  1. KETOCONAZOLE HAIR RINSE [Concomitant]
     Indication: ADVERSE EVENT
     Route: 065
     Dates: start: 20130504
  2. ADVIL [Concomitant]
     Active Substance: IBUPROFEN
     Indication: ADVERSE EVENT
     Route: 065
     Dates: start: 20150304, end: 20160420
  3. CEFTRIAXONE. [Concomitant]
     Active Substance: CEFTRIAXONE
     Indication: ADVERSE EVENT
     Route: 065
     Dates: start: 20150801, end: 20150806
  4. HYDROMORPHONE [Concomitant]
     Active Substance: HYDROMORPHONE
     Indication: ADVERSE EVENT
     Route: 065
     Dates: start: 20150728, end: 20150729
  5. VITAMIN B12 [Concomitant]
     Active Substance: CYANOCOBALAMIN
     Indication: PRODUCT USED FOR UNKNOWN INDICATION
     Route: 065
     Dates: start: 2010
  6. FOLIC ACID. [Concomitant]
     Active Substance: FOLIC ACID
     Indication: PRODUCT USED FOR UNKNOWN INDICATION
     Route: 065
     Dates: start: 2010
  7. TYLENOL EXTRA STRENGTH [Concomitant]
     Active Substance: ACETAMINOPHEN
     Indication: ADVERSE EVENT
     Route: 065
     Dates: start: 20141217
  8. CIPROFLOXACIN. [Concomitant]
     Active Substance: CIPROFLOXACIN
     Indication: ADVERSE EVENT
     Route: 065
     Dates: start: 20150829, end: 20150905
  9. ANODAN HC [Concomitant]
     Indication: ADVERSE EVENT
     Route: 065
     Dates: start: 20150916
  10. PANTOLOC [Concomitant]
     Active Substance: PANTOPRAZOLE SODIUM
     Indication: PRODUCT USED FOR UNKNOWN INDICATION
     Route: 065
     Dates: start: 20120803
  11. OMEGA 3 [Concomitant]
     Active Substance: OMEGA-3 FATTY ACIDS
     Indication: PRODUCT USED FOR UNKNOWN INDICATION
     Route: 065
     Dates: start: 20131121
  12. REVLIMID [Suspect]
     Active Substance: LENALIDOMIDE
     Indication: PLASMA CELL MYELOMA
     Dosage: 10 MILLIGRAM
     Route: 048
     Dates: start: 20120803
  13. ASPIRIN. [Concomitant]
     Active Substance: ASPIRIN
     Indication: PRODUCT USED FOR UNKNOWN INDICATION
     Dosage: 81 MILLIGRAM
     Route: 065
     Dates: start: 20120803
  14. PREMARIN [Concomitant]
     Active Substance: ESTROGENS, CONJUGATED
     Indication: PRODUCT USED FOR UNKNOWN INDICATION
     Route: 065
     Dates: start: 20150119
  15. FLAGYL [Concomitant]
     Active Substance: METRONIDAZOLE\METRONIDAZOLE HYDROCHLORIDE
     Indication: ADVERSE EVENT
     Route: 065
     Dates: start: 20150807, end: 20150817
  16. CYCLOBENZAPRINE [Concomitant]
     Active Substance: CYCLOBENZAPRINE
     Indication: ADVERSE EVENT
     Route: 065
     Dates: start: 20150824, end: 20151117
  17. SYNTHROID [Concomitant]
     Active Substance: LEVOTHYROXINE SODIUM
     Indication: PRODUCT USED FOR UNKNOWN INDICATION
     Route: 065
     Dates: start: 2011
  18. MINOXIDIL HAIR RINSE [Concomitant]
     Indication: ADVERSE EVENT
     Route: 065
     Dates: start: 20130504
  19. MULTIVITAMINS [Concomitant]
     Active Substance: VITAMINS
     Indication: PRODUCT USED FOR UNKNOWN INDICATION
     Route: 065
     Dates: start: 20131024
  20. ZOMETA [Concomitant]
     Active Substance: ZOLEDRONIC ACID
     Indication: ADVERSE EVENT
     Route: 065
     Dates: start: 20140919, end: 20160115
  21. NAPROXEN. [Concomitant]
     Active Substance: NAPROXEN
     Indication: ADVERSE EVENT
     Route: 065
     Dates: start: 20150728, end: 20150806
  22. RESTORALAX [Concomitant]
     Active Substance: POLYETHYLENE GLYCOL 3350
     Indication: ADVERSE EVENT
     Route: 065
     Dates: start: 20150916
  23. DEXAMETHASONE ORAL [Suspect]
     Active Substance: DEXAMETHASONE
     Indication: PLASMA CELL MYELOMA
     Dosage: 10 MILLIGRAM
     Route: 048
     Dates: start: 20120803
  24. VITAMIN D [Concomitant]
     Active Substance: CHOLECALCIFEROL
     Indication: PRODUCT USED FOR UNKNOWN INDICATION
     Route: 065
     Dates: start: 2010
  25. CALCIUM [Concomitant]
     Active Substance: CALCIUM
     Indication: PRODUCT USED FOR UNKNOWN INDICATION
     Route: 065
     Dates: start: 2010
  26. DILAUDID [Concomitant]
     Active Substance: HYDROMORPHONE HYDROCHLORIDE
     Indication: PRODUCT USED FOR UNKNOWN INDICATION
     Route: 065
     Dates: start: 201203
  27. EURAX [Concomitant]
     Active Substance: CROTAMITON
     Indication: ADVERSE EVENT
     Route: 065
     Dates: start: 20120905
  28. CETAPHIL CLEANSE [Concomitant]
     Indication: ADVERSE EVENT
     Route: 065
     Dates: start: 20120905
  29. VOLTAREN [Concomitant]
     Active Substance: DICLOFENAC SODIUM
     Indication: ADVERSE EVENT
     Route: 065
     Dates: start: 20140729
  30. MORPHINE [Concomitant]
     Active Substance: MORPHINE
     Indication: ADVERSE EVENT
     Route: 065
     Dates: start: 20150304, end: 20160420

REACTIONS (1)
  - Ovarian cyst [Recovered/Resolved]

NARRATIVE: CASE EVENT DATE: 20150727
